FAERS Safety Report 6344055-6 (Version None)
Quarter: 2009Q3

REPORT INFORMATION
  Report Type: 
  Country: None (occurrence: None)
  Receive Date: 20090904
  Receipt Date: 20090904
  Transmission Date: 20100115
  Serious: Yes (Hospitalization, Other)
  Sender: FDA-Public Use
  Company Number: None

PATIENT
  Age: 55 Year
  Sex: Male
  Weight: 77.1115 kg

DRUGS (1)
  1. PROAIR HFA [Suspect]
     Indication: UNEVALUABLE EVENT
     Dosage: METERED DOSE RESCUE INHAL
     Route: 055
     Dates: start: 20090901, end: 20090904

REACTIONS (8)
  - ASTHMA [None]
  - CHEST DISCOMFORT [None]
  - CONDITION AGGRAVATED [None]
  - COUGH [None]
  - DYSPNOEA [None]
  - HYPERSENSITIVITY [None]
  - THROAT IRRITATION [None]
  - WHEEZING [None]
